FAERS Safety Report 24964251 (Version 1)
Quarter: 2025Q1

REPORT INFORMATION
  Report Type: Spontaneous
  Country: KR (occurrence: KR)
  Receive Date: 20250213
  Receipt Date: 20250213
  Transmission Date: 20250409
  Serious: Yes (Hospitalization, Other)
  Sender: AMGEN
  Company Number: KR-AMGEN-KORSP2025026330

PATIENT
  Sex: Female

DRUGS (2)
  1. PROLIA [Suspect]
     Active Substance: DENOSUMAB
     Indication: Product used for unknown indication
     Route: 065
  2. EVENITY [Suspect]
     Active Substance: ROMOSOZUMAB-AQQG
     Indication: Product used for unknown indication
     Route: 065

REACTIONS (4)
  - Unevaluable event [Unknown]
  - Musculoskeletal discomfort [Unknown]
  - Gait disturbance [Unknown]
  - Pallor [Unknown]
